FAERS Safety Report 7971233-2 (Version None)
Quarter: 2011Q4

REPORT INFORMATION
  Report Type: 
  Country: None (occurrence: None)
  Receive Date: 20111212
  Receipt Date: 20111201
  Transmission Date: 20120403
  Serious: Yes (Hospitalization)
  Sender: FDA-Public Use
  Company Number: GB-PFIZER INC-2011287480

PATIENT
  Age: 47 Year
  Sex: Male

DRUGS (5)
  1. DACARBAZINE [Suspect]
     Indication: METASTATIC MALIGNANT MELANOMA
     Dosage: 1000 MG/M2, AS PER PROTOCOL
     Route: 042
     Dates: start: 20110726, end: 20110927
  2. RANITIDINE [Concomitant]
     Indication: DYSPEPSIA
     Dosage: 300 MG, 1X/DAY
  3. PARACETAMOL [Concomitant]
     Indication: PAIN
     Dosage: 500 MG, 4X/DAY
     Route: 048
  4. SUNITINIB MALATE [Suspect]
     Indication: METASTATIC MALIGNANT MELANOMA
     Dosage: 50 MG, AS PER PROTOCOL
     Route: 048
     Dates: start: 20111018
  5. DICLOFENAC [Concomitant]
     Indication: PAIN
     Dosage: 50 MG, 3X/DAY
     Route: 048

REACTIONS (2)
  - PYREXIA [None]
  - VIRAL UPPER RESPIRATORY TRACT INFECTION [None]
